FAERS Safety Report 24257262 (Version 5)
Quarter: 2024Q4

REPORT INFORMATION
  Report Type: Spontaneous
  Country: US (occurrence: US)
  Receive Date: 20240828
  Receipt Date: 20241126
  Transmission Date: 20250115
  Serious: No
  Sender: BRISTOL-MYERS SQUIBB COMPANY
  Company Number: US-BRISTOL-MYERS SQUIBB COMPANY-2024-134837

PATIENT
  Age: 17 Year
  Sex: Female

DRUGS (1)
  1. ORENCIA [Suspect]
     Active Substance: ABATACEPT
     Indication: Juvenile idiopathic arthritis
     Route: 058

REACTIONS (6)
  - Muscle twitching [Unknown]
  - Epistaxis [Unknown]
  - Paraesthesia [Unknown]
  - Migraine [Unknown]
  - Fatigue [Unknown]
  - Arthralgia [Unknown]
